FAERS Safety Report 24318596 (Version 1)
Quarter: 2024Q3

REPORT INFORMATION
  Report Type: Spontaneous
  Country: MX (occurrence: MX)
  Receive Date: 20240913
  Receipt Date: 20240913
  Transmission Date: 20241017
  Serious: Yes (Other)
  Sender: ELI LILLY AND CO
  Company Number: MX-ELI_LILLY_AND_COMPANY-MX202409002689

PATIENT
  Age: 88 Year
  Sex: Female
  Weight: 42.5 kg

DRUGS (3)
  1. HUMALOG [Suspect]
     Active Substance: INSULIN LISPRO
     Indication: Product used for unknown indication
     Dosage: UNK UNK, UNKNOWN
     Route: 065
     Dates: start: 2004
  2. HUMALOG MIX75/25 [Suspect]
     Active Substance: INSULIN LISPRO
     Indication: Type 2 diabetes mellitus
     Dosage: 18 U, UNKNOWN
     Route: 065
  3. HUMALOG MIX75/25 [Suspect]
     Active Substance: INSULIN LISPRO
     Indication: Type 2 diabetes mellitus
     Dosage: UNK UNK, UNKNOWN
     Route: 065

REACTIONS (11)
  - Cholelithiasis [Unknown]
  - Injection site bruising [Unknown]
  - Sensitive skin [Unknown]
  - Wrong dosage formulation [Unknown]
  - Blood pressure fluctuation [Unknown]
  - Blood glucose increased [Unknown]
  - Dysbiosis [Unknown]
  - Blood glucose abnormal [Unknown]
  - Weight decreased [Unknown]
  - Malnutrition [Unknown]
  - Skin atrophy [Unknown]

NARRATIVE: CASE EVENT DATE: 20191201
